FAERS Safety Report 12263151 (Version 1)
Quarter: 2016Q2

REPORT INFORMATION
  Report Type: Spontaneous
  Country: US (occurrence: US)
  Receive Date: 20160413
  Receipt Date: 20160413
  Transmission Date: 20160815
  Serious: Yes (Hospitalization)
  Sender: FDA-Public Use
  Company Number: US-ALKEM-001576

PATIENT
  Age: 65 Year
  Sex: Female

DRUGS (3)
  1. LINEZOLID. [Suspect]
     Active Substance: LINEZOLID
     Indication: PNEUMONIA STAPHYLOCOCCAL
  2. PIPERACILLIN/TAZOBACTAM [Concomitant]
  3. LEVOFLOXACIN/LEVOFLOXACIN MESYLATE [Concomitant]

REACTIONS (1)
  - Serotonin syndrome [Recovered/Resolved]
